FAERS Safety Report 12830049 (Version 1)
Quarter: 2016Q4

REPORT INFORMATION
  Report Type: Spontaneous
  Country: US (occurrence: US)
  Receive Date: 20161007
  Receipt Date: 20161007
  Transmission Date: 20170207
  Serious: No
  Sender: FDA-Public Use
  Company Number: US-SA-2016SA094081

PATIENT
  Sex: Female

DRUGS (18)
  1. BISACODYL. [Concomitant]
     Active Substance: BISACODYL
  2. BISOPROLOL [Concomitant]
     Active Substance: BISOPROLOL
  3. METOPROLOL. [Concomitant]
     Active Substance: METOPROLOL
  4. PAROXETINE. [Concomitant]
     Active Substance: PAROXETINE
  5. OXYBUTYNIN [Concomitant]
     Active Substance: OXYBUTYNIN
  6. OMEPRAZOLE. [Concomitant]
     Active Substance: OMEPRAZOLE
  7. POTASSIUM [Concomitant]
     Active Substance: POTASSIUM
  8. ALBUTEROL. [Concomitant]
     Active Substance: ALBUTEROL
  9. FOSAMAX [Concomitant]
     Active Substance: ALENDRONATE SODIUM
  10. CLOBETASOL [Concomitant]
     Active Substance: CLOBETASOL
  11. NORTRIPTYLINE [Concomitant]
     Active Substance: NORTRIPTYLINE
  12. AUBAGIO [Suspect]
     Active Substance: TERIFLUNOMIDE
     Indication: MULTIPLE SCLEROSIS
     Route: 048
     Dates: start: 20160505
  13. FLEXERIL [Concomitant]
     Active Substance: CYCLOBENZAPRINE HYDROCHLORIDE
  14. IMITREX [Concomitant]
     Active Substance: SUMATRIPTAN SUCCINATE
  15. NITROSTAT [Concomitant]
     Active Substance: NITROGLYCERIN
  16. SPIRIVA [Concomitant]
     Active Substance: TIOTROPIUM BROMIDE MONOHYDRATE
  17. IBUPROFEN. [Concomitant]
     Active Substance: IBUPROFEN
  18. PROAIR HFA [Concomitant]
     Active Substance: ALBUTEROL SULFATE

REACTIONS (4)
  - Insomnia [Not Recovered/Not Resolved]
  - Ageusia [Not Recovered/Not Resolved]
  - Pain in extremity [Not Recovered/Not Resolved]
  - Alopecia [Not Recovered/Not Resolved]
